FAERS Safety Report 10930847 (Version 1)
Quarter: 2015Q1

REPORT INFORMATION
  Report Type: Spontaneous
  Country: US (occurrence: US)
  Receive Date: 20150319
  Receipt Date: 20150319
  Transmission Date: 20150721
  Serious: No
  Sender: FDA-Public Use
  Company Number: US-BAUSCH-SYM-2014-17875

PATIENT
  Sex: Female

DRUGS (2)
  1. NU-DERM BLENDER [Suspect]
     Active Substance: HYDROQUINONE
     Indication: PIGMENTATION DISORDER
     Route: 061
  2. TRETINOIN CREAM [Suspect]
     Active Substance: TRETINOIN
     Indication: PIGMENTATION DISORDER
     Route: 061

REACTIONS (6)
  - Hepatitis [Recovering/Resolving]
  - Fatigue [Recovering/Resolving]
  - Hepatic enzyme increased [Recovering/Resolving]
  - Liver disorder [Recovering/Resolving]
  - Alopecia [Recovering/Resolving]
  - Pyrexia [Recovering/Resolving]

NARRATIVE: CASE EVENT DATE: 201302
